FAERS Safety Report 9494703 (Version 1)
Quarter: 2013Q3

REPORT INFORMATION
  Report Type: Report from Study
  Country: CA (occurrence: CA)
  Receive Date: 20130903
  Receipt Date: 20130903
  Transmission Date: 20140515
  Serious: No
  Sender: FDA-Public Use
  Company Number: CA-JNJFOC-20130814353

PATIENT
  Sex: Male
  Weight: 70.3 kg

DRUGS (1)
  1. STELARA [Suspect]
     Indication: PSORIASIS
     Route: 058
     Dates: end: 20130301

REACTIONS (1)
  - Hepatic enzyme increased [Unknown]
